FAERS Safety Report 17782995 (Version 1)
Quarter: 2020Q2

REPORT INFORMATION
  Report Type: Spontaneous
  Country: JP (occurrence: JP)
  Receive Date: 20200514
  Receipt Date: 20200514
  Transmission Date: 20200714
  Serious: Yes (Life-Threatening, Hospitalization, Other)
  Sender: FDA-Public Use
  Company Number: JP-ALVOGEN-2020-ALVOGEN-108377

PATIENT
  Age: 41 Year
  Sex: Female

DRUGS (6)
  1. PROGESTERONE. [Suspect]
     Active Substance: PROGESTERONE
     Indication: HORMONE THERAPY
     Route: 067
  2. ESTRADIOL. [Suspect]
     Active Substance: ESTRADIOL
     Indication: HORMONE THERAPY
     Route: 062
  3. TACROLIMUS. [Suspect]
     Active Substance: TACROLIMUS
     Indication: SYSTEMIC LUPUS ERYTHEMATOSUS
  4. HYDROXYCHLOROQUINE [Suspect]
     Active Substance: HYDROXYCHLOROQUINE
     Indication: SYSTEMIC LUPUS ERYTHEMATOSUS
  5. DYDROGESTERONE [Suspect]
     Active Substance: DYDROGESTERONE
     Indication: HORMONE THERAPY
     Route: 048
  6. PREDNISOLONE. [Suspect]
     Active Substance: PREDNISOLONE
     Indication: SYSTEMIC LUPUS ERYTHEMATOSUS

REACTIONS (13)
  - Hypogonadism [Recovered/Resolved]
  - Hormone level abnormal [Recovered/Resolved]
  - Infarction [Recovered/Resolved]
  - Vaginal haemorrhage [Recovered/Resolved]
  - Adrenal disorder [Recovered/Resolved]
  - Caesarean section [Recovered/Resolved]
  - Blood pressure increased [Recovered/Resolved]
  - Placenta accreta [Recovered/Resolved]
  - Pre-eclampsia [Recovered/Resolved]
  - Proteinuria [Recovered/Resolved]
  - Uterine atony [Recovered/Resolved]
  - Maternal exposure during pregnancy [Recovered/Resolved]
  - Pelvic infection [Recovered/Resolved]
